FAERS Safety Report 13546611 (Version 1)
Quarter: 2017Q2

REPORT INFORMATION
  Report Type: Spontaneous
  Country: US (occurrence: US)
  Receive Date: 20170515
  Receipt Date: 20170515
  Transmission Date: 20170830
  Serious: No
  Sender: FDA-Public Use
  Company Number: US-VIFOR (INTERNATIONAL) INC.-VIT-2017-00827

PATIENT
  Sex: Male

DRUGS (14)
  1. VELTASSA [Suspect]
     Active Substance: PATIROMER
     Indication: HYPERKALAEMIA
     Route: 048
     Dates: start: 20160504
  2. ACICLOVIR [Concomitant]
     Active Substance: ACYCLOVIR
  3. ULORIC [Concomitant]
     Active Substance: FEBUXOSTAT
  4. LORAZEPAM. [Concomitant]
     Active Substance: LORAZEPAM
  5. ALLEGRA ALLERGY [Concomitant]
     Active Substance: FEXOFENADINE HYDROCHLORIDE
  6. ACETYLSALICYLIC ACID [Concomitant]
     Active Substance: ASPIRIN
  7. CALCITRIOL. [Concomitant]
     Active Substance: CALCITRIOL
  8. ATOVAQUONE. [Concomitant]
     Active Substance: ATOVAQUONE
  9. MIDODRINE HYDROCHLORIDE. [Concomitant]
     Active Substance: MIDODRINE HYDROCHLORIDE
  10. SYNTHROID [Concomitant]
     Active Substance: LEVOTHYROXINE SODIUM
  11. PARACETAMOL [Concomitant]
     Active Substance: ACETAMINOPHEN
  12. CABERGOLINE. [Concomitant]
     Active Substance: CABERGOLINE
  13. DEXAMETHASONE SODIUM PHOSPHATE. [Concomitant]
     Active Substance: DEXAMETHASONE SODIUM PHOSPHATE
  14. ANDROGEL [Concomitant]
     Active Substance: TESTOSTERONE

REACTIONS (1)
  - Blood potassium decreased [Unknown]
